FAERS Safety Report 6693135-4 (Version None)
Quarter: 2010Q2

REPORT INFORMATION
  Report Type: 
  Country: None (occurrence: None)
  Receive Date: 20100420
  Receipt Date: 20100412
  Transmission Date: 20101027
  Serious: Yes (Other)
  Sender: FDA-Public Use
  Company Number: 2010SP021965

PATIENT
  Age: 16 Year
  Sex: Female

DRUGS (1)
  1. CLARITIN [Suspect]
     Indication: FOOD ALLERGY
     Dosage: 10 MG; ONCE; PO
     Route: 048
     Dates: start: 20100412

REACTIONS (1)
  - LIP SWELLING [None]
